FAERS Safety Report 9425601 (Version 1)
Quarter: 2013Q3

REPORT INFORMATION
  Report Type: Spontaneous
  Country: US (occurrence: US)
  Receive Date: 20130729
  Receipt Date: 20130729
  Transmission Date: 20140515
  Serious: No
  Sender: FDA-Public Use
  Company Number: US-MYLANLABS-2013S1007566

PATIENT
  Age: 45 Year
  Sex: Female
  Weight: 47.17 kg

DRUGS (3)
  1. LEVOTHYROXINE SODIUM TABLETS, USP [Suspect]
     Indication: HYPOTHYROIDISM
     Route: 048
     Dates: start: 20130226, end: 2013
  2. LEVOTHYROXINE SODIUM TABLETS, USP [Suspect]
     Indication: HYPOTHYROIDISM
     Dosage: CYCLING DOSE AT:  88MCG FIRST DAY, 100UG SECOND DAY. 100UG THIRD DAY
     Route: 048
     Dates: start: 2013
  3. CLARITIN /00917501/ [Concomitant]
     Indication: MULTIPLE ALLERGIES
     Dates: start: 20130327

REACTIONS (11)
  - Drug effect increased [Recovered/Resolved]
  - Dizziness [Recovered/Resolved]
  - Chest pain [Recovered/Resolved]
  - Swelling face [Recovered/Resolved]
  - Urticaria [Recovered/Resolved]
  - Urine output decreased [Recovered/Resolved]
  - Sensation of pressure [Recovered/Resolved]
  - Blood pressure increased [Recovered/Resolved]
  - Insomnia [Recovered/Resolved]
  - Heart rate increased [Recovered/Resolved]
  - Pharyngeal oedema [Not Recovered/Not Resolved]
